FAERS Safety Report 18692762 (Version 2)
Quarter: 2021Q1

REPORT INFORMATION
  Report Type: Spontaneous
  Country: DE (occurrence: DE)
  Receive Date: 20210104
  Receipt Date: 20210128
  Transmission Date: 20210419
  Serious: Yes (Hospitalization, Other)
  Sender: FDA-Public Use
  Company Number: DE-AUROBINDO-AUR-APL-2020-063956

PATIENT
  Age: 76 Year
  Sex: Male

DRUGS (1)
  1. DIPHENHYDRAMINE. [Suspect]
     Active Substance: DIPHENHYDRAMINE
     Indication: PRODUCT USED FOR UNKNOWN INDICATION
     Dosage: 200 MILLIGRAM
     Route: 048

REACTIONS (18)
  - Dementia [Unknown]
  - Atrophy [Unknown]
  - Delusion [Recovering/Resolving]
  - Facial paresis [Unknown]
  - Cognitive disorder [Unknown]
  - Tachycardia [Unknown]
  - Strabismus [Unknown]
  - Psychotic symptom [Recovering/Resolving]
  - Anticholinergic syndrome [Unknown]
  - Urinary hesitation [Unknown]
  - Intentional overdose [Unknown]
  - Psychomotor hyperactivity [Recovering/Resolving]
  - Electroencephalogram abnormal [Unknown]
  - Anaemia [Unknown]
  - Basal ganglia infarction [Unknown]
  - Hypokalaemia [Unknown]
  - Constipation [Unknown]
  - Hypertension [Unknown]
